FAERS Safety Report 12014341 (Version 1)
Quarter: 2016Q1

REPORT INFORMATION
  Report Type: Spontaneous
  Country: CH (occurrence: CH)
  Receive Date: 20160205
  Receipt Date: 20160205
  Transmission Date: 20160526
  Serious: Yes (Life-Threatening, Hospitalization, Other)
  Sender: FDA-Public Use
  Company Number: CH-SA-2016SA017026

PATIENT
  Age: 29 Year
  Sex: Female
  Weight: 50 kg

DRUGS (21)
  1. DALTEPARIN [Suspect]
     Active Substance: DALTEPARIN
     Indication: ANTICOAGULANT THERAPY
     Dosage: DOSE:10000 UNIT(S)
     Route: 058
  2. HEPARIN [Suspect]
     Active Substance: HEPARIN SODIUM
     Indication: ANTICOAGULANT THERAPY
     Dosage: PER 24 H DOSE:15000 UNIT(S)
     Route: 065
  3. AMOXICILLIN (SALT NOT SPECIFIED) [Suspect]
     Active Substance: AMOXICILLIN
     Indication: ANTIBIOTIC PROPHYLAXIS
     Route: 065
  4. FONDAPARINUX SODIUM. [Suspect]
     Active Substance: FONDAPARINUX SODIUM
     Route: 058
  5. FUROSEMIDE. [Suspect]
     Active Substance: FUROSEMIDE
     Indication: CARDIAC FAILURE CONGESTIVE
     Route: 042
  6. OXYTOCIN. [Concomitant]
     Active Substance: OXYTOCIN
     Dosage: SLOW INFUSION DOSE:3 UNIT(S)
  7. NOREPINEPHRINE [Suspect]
     Active Substance: NOREPINEPHRINE\NOREPINEPHRINE BITARTRATE
     Dosage: INFUSION
     Route: 065
  8. NOREPINEPHRINE [Suspect]
     Active Substance: NOREPINEPHRINE\NOREPINEPHRINE BITARTRATE
     Route: 065
  9. MORPHINE [Concomitant]
     Active Substance: MORPHINE
  10. ESMOLOL [Concomitant]
     Active Substance: ESMOLOL HYDROCHLORIDE
  11. MAGNESIUM SULFATE. [Suspect]
     Active Substance: MAGNESIUM SULFATE
     Route: 042
  12. BETAMETHASONE. [Suspect]
     Active Substance: BETAMETHASONE
     Indication: MATERNAL THERAPY TO ENHANCE FOETAL LUNG MATURITY
     Route: 065
  13. REMIFENTANIL [Concomitant]
     Active Substance: REMIFENTANIL
     Dosage: MAXIMUM 0.7 MCG/KG/MIN
     Route: 042
  14. HEPARIN [Suspect]
     Active Substance: HEPARIN SODIUM
     Indication: CARDIAC VALVE DISEASE
     Dosage: PER 24 H DOSE:15000 UNIT(S)
     Route: 065
  15. DIGOXIN. [Suspect]
     Active Substance: DIGOXIN
     Indication: CARDIAC FAILURE CONGESTIVE
     Route: 042
  16. POTASSIUM CHLORIDE. [Suspect]
     Active Substance: POTASSIUM CHLORIDE
     Route: 042
  17. ASPIRIN. [Suspect]
     Active Substance: ASPIRIN
     Route: 048
  18. METOPROLOL SALT NOT SPECIFIED [Suspect]
     Active Substance: METOPROLOL
     Route: 065
  19. IRON [Concomitant]
     Active Substance: IRON
  20. BUPIVACAINE [Concomitant]
     Active Substance: BUPIVACAINE
     Dosage: HYPERBARIC
     Route: 037
  21. FENTANYL. [Concomitant]
     Active Substance: FENTANYL

REACTIONS (5)
  - Premature delivery [None]
  - Placental insufficiency [None]
  - Heparin-induced thrombocytopenia [Unknown]
  - Exposure during pregnancy [Unknown]
  - Caesarean section [None]
